FAERS Safety Report 5123848-7 (Version None)
Quarter: 2006Q4

REPORT INFORMATION
  Report Type: 
  Country: None (occurrence: None)
  Receive Date: 20061010
  Receipt Date: 20060630
  Transmission Date: 20070319
  Serious: Yes (Other)
  Sender: FDA-Public Use
  Company Number: FR-GLAXOSMITHKLINE-B0429737A

PATIENT
  Sex: Female

DRUGS (2)
  1. ZELITREX [Suspect]
     Indication: HERPES SIMPLEX
     Route: 048
  2. ANALGESIC [Concomitant]

REACTIONS (2)
  - PARASITIC INFECTION INTESTINAL [None]
  - TRANSAMINASES INCREASED [None]
